FAERS Safety Report 5363724-8 (Version None)
Quarter: 2007Q2

REPORT INFORMATION
  Report Type: 
  Country: None (occurrence: None)
  Receive Date: 20070618
  Receipt Date: 20070618
  Transmission Date: 20071010
  Serious: Yes (Other)
  Sender: FDA-Public Use
  Company Number: None

PATIENT
  Age: 40 Year
  Sex: Female
  Weight: 57.1532 kg

DRUGS (1)
  1. BIAXIN XL [Suspect]
     Indication: SINUSITIS
     Dosage: 2 TABLET ONCE DAILY PO
     Route: 048
     Dates: start: 20070615, end: 20070616

REACTIONS (4)
  - DIARRHOEA [None]
  - DIZZINESS [None]
  - SYNCOPE [None]
  - VITREOUS FLOATERS [None]
